FAERS Safety Report 7349515-7 (Version None)
Quarter: 2011Q1

REPORT INFORMATION
  Report Type: 
  Country: None (occurrence: None)
  Receive Date: 20110303
  Receipt Date: 20110224
  Transmission Date: 20110831
  Serious: Yes (Other)
  Sender: FDA-Public Use
  Company Number: 2010SP004890

PATIENT
  Age: 27 Year
  Sex: Female
  Weight: 89.8122 kg

DRUGS (2)
  1. NUVARING [Suspect]
     Indication: CONTRACEPTION
     Dosage: 1 DF;GM;VAG
     Route: 067
     Dates: start: 20040414, end: 20061001
  2. NUVARING [Suspect]
     Indication: CONTRACEPTION
     Dosage: 1 DF;GM;VAG
     Route: 067
     Dates: start: 20070101

REACTIONS (10)
  - THROMBOSIS [None]
  - ANGINA PECTORIS [None]
  - PAPILLOMA VIRAL INFECTION [None]
  - DEEP VEIN THROMBOSIS [None]
  - VARICOSE VEIN [None]
  - PREGNANCY [None]
  - ABORTION COMPLETE [None]
  - CERVICAL DYSPLASIA [None]
  - MIGRAINE [None]
  - HEART RATE IRREGULAR [None]
